FAERS Safety Report 6998816-0 (Version None)
Quarter: 2010Q3

REPORT INFORMATION
  Report Type: 
  Country: None (occurrence: None)
  Receive Date: 20100920
  Receipt Date: 20100104
  Transmission Date: 20110219
  Serious: No
  Sender: FDA-Public Use
  Company Number: US-ASTRAZENECA-2009SE22084

PATIENT
  Age: 31 Year
  Sex: Female
  Weight: 163.3 kg

DRUGS (6)
  1. SEROQUEL [Suspect]
     Indication: SLEEP DISORDER
     Route: 048
     Dates: start: 20040601, end: 20061001
  2. SEROQUEL [Suspect]
     Indication: MENTAL DISORDER
     Route: 048
     Dates: start: 20040601, end: 20061001
  3. ABILIFY [Concomitant]
     Dosage: 10 MG FOR ONE MONTH
     Route: 048
     Dates: start: 20060601
  4. GEODON [Concomitant]
     Route: 048
     Dates: start: 20060101
  5. CYMBALTA [Concomitant]
     Route: 048
     Dates: start: 20060101
  6. THORAZINE [Concomitant]
     Route: 048
     Dates: start: 20060101

REACTIONS (6)
  - BACK PAIN [None]
  - BLOOD CHOLESTEROL INCREASED [None]
  - HYPERLIPIDAEMIA [None]
  - JOINT INJURY [None]
  - OVERWEIGHT [None]
  - TYPE 2 DIABETES MELLITUS [None]
